FAERS Safety Report 12373856 (Version 1)
Quarter: 2016Q2

REPORT INFORMATION
  Report Type: Spontaneous
  Country: JP (occurrence: JP)
  Receive Date: 20160517
  Receipt Date: 20160517
  Transmission Date: 20160815
  Serious: Yes (Hospitalization)
  Sender: FDA-Public Use
  Company Number: JP-ROCHE-1758684

PATIENT
  Age: 67 Year
  Sex: Male

DRUGS (16)
  1. BROCIN [Concomitant]
     Route: 048
     Dates: start: 20160220, end: 20160224
  2. ACETAMINOPHEN. [Concomitant]
     Active Substance: ACETAMINOPHEN
     Dosage: DOSAGE IS UNCERTAIN.
     Route: 065
     Dates: start: 20160212, end: 20160214
  3. NORVASC [Concomitant]
     Active Substance: AMLODIPINE BESYLATE
     Dosage: DOSAGE IS UNCERTAIN.
     Route: 048
  4. METHYLEPHEDRINE HYDROCHLORIDE [Concomitant]
     Active Substance: METHYLEPHEDRINE HYDROCHLORIDE
  5. ROCEPHIN [Suspect]
     Active Substance: CEFTRIAXONE SODIUM
     Indication: NASOPHARYNGITIS
     Dosage: DOSAGE IS UNCERTAIN.
     Route: 042
  6. MUCODYNE [Concomitant]
     Active Substance: CARBOCYSTEINE
     Dosage: DOSAGE IS UNCERTAIN.
     Route: 065
     Dates: start: 20160216, end: 20160224
  7. SENEGA [Concomitant]
     Dosage: DOSAGE IS UNCERTAIN.
     Route: 048
  8. ZITHROMAC [Suspect]
     Active Substance: AZITHROMYCIN DIHYDRATE
     Indication: NASOPHARYNGITIS
     Route: 048
     Dates: start: 20160226, end: 20160228
  9. ASTOMIN (JAPAN) [Concomitant]
     Dosage: DOSAGE IS UNCERTAIN.
     Route: 065
     Dates: start: 20160212, end: 20160214
  10. LOXONIN [Concomitant]
     Active Substance: LOXOPROFEN SODIUM
     Dosage: DOSAGE IS UNCERTAIN.
     Route: 065
     Dates: start: 20160216, end: 20160220
  11. EXFORGE [Concomitant]
     Active Substance: AMLODIPINE BESYLATE\VALSARTAN
     Dosage: DOSAGE IS UNCERTAIN.
     Route: 065
  12. FLOMOX (JAPAN) [Concomitant]
     Active Substance: CEFCAPENE PIVOXIL HYDROCHLORIDE HYDRATE
     Dosage: DOSAGE IS UNCERTAIN.
     Route: 065
     Dates: start: 20160212, end: 20160214
  13. CRAVIT [Concomitant]
     Active Substance: LEVOFLOXACIN
     Dosage: DOSAGE IS UNCERTAIN.
     Route: 065
     Dates: start: 20160216, end: 20160220
  14. APRICOT KERNEL WATER [Concomitant]
     Active Substance: HERBALS
     Dosage: DOSAGE IS UNCERTAIN.
     Route: 065
     Dates: start: 20160220, end: 20160224
  15. LOXOPROFEN SODIUM [Concomitant]
     Active Substance: LOXOPROFEN SODIUM
  16. HUSCODE [Concomitant]
     Active Substance: CHLORPHENIRAMINE MALEAT\DIHYDROCODEINE PHOSPHATE\METHYLEPHEDRINE HYDROCHLORIDE, DL-
     Dosage: DOSAGE IS UNCERTAIN.
     Route: 048
     Dates: start: 20160219, end: 20160225

REACTIONS (1)
  - Pneumonia [Recovered/Resolved]

NARRATIVE: CASE EVENT DATE: 20160301
